FAERS Safety Report 6795493-9 (Version None)
Quarter: 2010Q2

REPORT INFORMATION
  Report Type: 
  Country: None (occurrence: None)
  Receive Date: 20100625
  Receipt Date: 20100614
  Transmission Date: 20101027
  Serious: Yes (Other)
  Sender: FDA-Public Use
  Company Number: PHFR2010GB01002

PATIENT
  Sex: Male

DRUGS (1)
  1. CLOZARIL [Suspect]
     Indication: SCHIZOPHRENIA
     Dosage: UNK
     Route: 048
     Dates: start: 19991012

REACTIONS (5)
  - BLOOD CREATININE INCREASED [None]
  - DELUSIONAL PERCEPTION [None]
  - ELECTROCARDIOGRAM QT INTERVAL ABNORMAL [None]
  - GLOMERULAR FILTRATION RATE DECREASED [None]
  - SALIVARY HYPERSECRETION [None]
